FAERS Safety Report 12068826 (Version 2)
Quarter: 2016Q1

REPORT INFORMATION
  Report Type: Spontaneous
  Country: US (occurrence: US)
  Receive Date: 20160211
  Receipt Date: 20160223
  Transmission Date: 20160526
  Serious: Yes (Other)
  Sender: FDA-Public Use
  Company Number: US-AMGEN-USASP2016014734

PATIENT
  Sex: Male
  Weight: 102.4 kg

DRUGS (1)
  1. NPLATE [Suspect]
     Active Substance: ROMIPLOSTIM
     Indication: PRODUCT USED FOR UNKNOWN INDICATION
     Dosage: 700 MUG, QWK
     Route: 058
     Dates: start: 2011, end: 201512

REACTIONS (2)
  - Monoclonal B-cell lymphocytosis [Unknown]
  - Drug ineffective [Unknown]
